FAERS Safety Report 9017065 (Version 1)
Quarter: 2013Q1

REPORT INFORMATION
  Report Type: Spontaneous
  Country: FR (occurrence: FR)
  Receive Date: 20130117
  Receipt Date: 20130117
  Transmission Date: 20140127
  Serious: Yes (Death, Other)
  Sender: FDA-Public Use
  Company Number: PHHY2013FR004183

PATIENT
  Age: 58 Year
  Sex: Male

DRUGS (7)
  1. ACLASTA [Suspect]
     Indication: OSTEOPOROSIS
     Dosage: UNK UKN, UNK
     Route: 042
     Dates: start: 20121017
  2. LEVOTHYROX [Concomitant]
     Indication: HYPOTHYROIDISM
     Dosage: 25 UG, UNK
     Dates: start: 2002
  3. PREDNISOLONE [Concomitant]
     Indication: SARCOIDOSIS
     Dosage: 70 MG, UNK
     Route: 048
  4. PREDNISOLONE [Concomitant]
     Dosage: 20 MG, UNK
     Route: 048
     Dates: start: 2012
  5. ODRIK [Concomitant]
     Indication: HYPERTENSION
     Dosage: 2 MG, UNK
     Route: 048
  6. CORSET [Concomitant]
     Dosage: UNK UKN, UNK
  7. PARACETAMOL [Concomitant]

REACTIONS (9)
  - Pulmonary embolism [Fatal]
  - Cardiac arrest [Fatal]
  - Fall [Unknown]
  - Viral pharyngitis [Unknown]
  - General physical health deterioration [Unknown]
  - Weight increased [Unknown]
  - Spinal pain [Unknown]
  - Dyspnoea [Unknown]
  - Insomnia [Unknown]
